FAERS Safety Report 7690761 (Version 2)
Quarter: 2020Q3

REPORT INFORMATION
  Report Type: Spontaneous
  Country: CA (occurrence: PE)
  Receive Date: 20101203
  Receipt Date: 20200824
  Transmission Date: 20201103
  Serious: Yes (Congenital Anomaly)
  Sender: FDA-Public Use
  Company Number: CA-JNJFOC-20101200008

PATIENT
  Sex: Female

DRUGS (3)
  1. VERMOX [Suspect]
     Active Substance: MEBENDAZOLE
     Indication: FOETAL EXPOSURE DURING PREGNANCY
     Route: 064
  2. VERMOX [Suspect]
     Active Substance: MEBENDAZOLE
     Indication: LOW BIRTH WEIGHT BABY
  3. IRON SUPPLEMENTS [Suspect]
     Active Substance: IRON
     Indication: FOETAL EXPOSURE DURING PREGNANCY
     Route: 064

REACTIONS (2)
  - Vaginal perforation [Unknown]
  - Congenital anomaly [Unknown]
